FAERS Safety Report 7435683-5 (Version None)
Quarter: 2011Q2

REPORT INFORMATION
  Report Type: 
  Country: None (occurrence: None)
  Receive Date: 20110425
  Receipt Date: 20110415
  Transmission Date: 20111010
  Serious: Yes (Hospitalization)
  Sender: FDA-Public Use
  Company Number: PHHY2011GR31815

PATIENT
  Age: 27 Year
  Sex: Male

DRUGS (1)
  1. VENLAFAXINE HCL [Suspect]
     Dosage: 6.3 G (3 BLISTERS TOTALING 42 EXTENDED-RELEASE CAPSULES OF 150 MG EACH)

REACTIONS (14)
  - SCHIZOAFFECTIVE DISORDER [None]
  - SHOCK [None]
  - RESPIRATORY FAILURE [None]
  - EOSINOPHILIA [None]
  - SUICIDAL IDEATION [None]
  - OVERDOSE [None]
  - LUNG INFILTRATION [None]
  - AGITATION [None]
  - CONVULSION [None]
  - DYSPNOEA [None]
  - LUNG CONSOLIDATION [None]
  - EOSINOPHILIC PNEUMONIA ACUTE [None]
  - PULMONARY EOSINOPHILIA [None]
  - TACHYCARDIA [None]
